FAERS Safety Report 10299741 (Version 2)
Quarter: 2014Q3

REPORT INFORMATION
  Report Type: Spontaneous
  Country: US (occurrence: US)
  Receive Date: 20140711
  Receipt Date: 20140711
  Transmission Date: 20150326
  Serious: No
  Sender: FDA-Public Use
  Company Number: US-GILEAD-2013-0079974

PATIENT
  Sex: Male

DRUGS (4)
  1. REVATIO [Concomitant]
     Active Substance: SILDENAFIL CITRATE
  2. LETAIRIS [Suspect]
     Active Substance: AMBRISENTAN
     Indication: PULMONARY HYPERTENSION
     Dosage: 5 MG, QD
     Route: 048
     Dates: start: 20130711
  3. LETAIRIS [Suspect]
     Active Substance: AMBRISENTAN
     Indication: LUNG DISORDER
  4. LETAIRIS [Suspect]
     Active Substance: AMBRISENTAN
     Indication: HYPOXIA

REACTIONS (4)
  - Dyspnoea [Unknown]
  - Nasal congestion [Unknown]
  - Oxygen saturation abnormal [Unknown]
  - Drug intolerance [Unknown]
